FAERS Safety Report 4686817-7 (Version None)
Quarter: 2005Q2

REPORT INFORMATION
  Report Type: 
  Country: None (occurrence: None)
  Receive Date: 20050609
  Receipt Date: 20050530
  Transmission Date: 20051028
  Serious: Yes (Death, Other)
  Sender: FDA-Public Use
  Company Number: ZA-ABBOTT-05P-143-0302091-00

PATIENT
  Sex: Female

DRUGS (7)
  1. EPILIM TABLETS [Suspect]
     Indication: BIPOLAR DISORDER
     Route: 048
     Dates: start: 20050411, end: 20050513
  2. LITHIUM [Concomitant]
     Indication: BIPOLAR DISORDER
     Route: 048
     Dates: start: 19810101, end: 20050401
  3. FLUPENTIXOL DIHYDROCHLORIDE [Concomitant]
     Indication: DRUG USE FOR UNKNOWN INDICATION
     Route: 030
     Dates: start: 20031101, end: 20050301
  4. CHLORPROMAZINE HCL [Concomitant]
     Indication: DRUG USE FOR UNKNOWN INDICATION
     Route: 048
     Dates: start: 20050511
  5. CHLORPROMAZINE HCL [Concomitant]
     Route: 065
     Dates: start: 20050428, end: 20050502
  6. CHLORPROMAZINE HCL [Concomitant]
     Route: 065
     Dates: start: 20050503, end: 20050505
  7. CHLORPROMAZINE HCL [Concomitant]
     Route: 065
     Dates: start: 20050506, end: 20050510

REACTIONS (4)
  - DIABETIC KETOACIDOSIS [None]
  - LETHARGY [None]
  - SOMNOLENCE [None]
  - THIRST [None]
